FAERS Safety Report 7361187-4 (Version None)
Quarter: 2011Q1

REPORT INFORMATION
  Report Type: 
  Country: None (occurrence: None)
  Receive Date: 20110318
  Receipt Date: 20110311
  Transmission Date: 20110831
  Serious: Yes (Other)
  Sender: FDA-Public Use
  Company Number: US-B.I. PHARMACEUTICALS,INC./RIDGEFIELD-2011-BP-07683BP

PATIENT
  Age: 36 Year
  Sex: Female

DRUGS (2)
  1. VIRAMUNE [Suspect]
     Dosage: 400 MG
     Route: 048
  2. COMBIVIR [Suspect]
     Dosage: 2 NR
     Route: 048

REACTIONS (3)
  - PREGNANCY [None]
  - DRUG EXPOSURE DURING PREGNANCY [None]
  - ABORTION SPONTANEOUS [None]
